FAERS Safety Report 11794075 (Version 1)
Quarter: 2015Q4

REPORT INFORMATION
  Report Type: Spontaneous
  Country: US (occurrence: None)
  Receive Date: 20151201
  Receipt Date: 20151201
  Transmission Date: 20160305
  Serious: No
  Sender: FDA-Public Use
  Company Number: None

PATIENT
  Age: 80 Year
  Sex: Female
  Weight: 58.06 kg

DRUGS (6)
  1. LOW DOSE ASPIRIN [Concomitant]
     Active Substance: ASPIRIN
  2. PRESERVISION FIBER [Concomitant]
  3. CALCIUM CITRATE WITH VITAMIN D [Concomitant]
     Active Substance: CALCIUM CITRATE\VITAMIN D
  4. ZOLPIDEM [Suspect]
     Active Substance: ZOLPIDEM\ZOLPIDEM TARTRATE
     Indication: INSOMNIA
     Dosage: 5 MG 1 PILL BEDTIME BY MOUTH
     Route: 048
     Dates: start: 20150625, end: 201510
  5. VITAMIN B12 [Concomitant]
     Active Substance: CYANOCOBALAMIN
  6. BIOTIN [Concomitant]
     Active Substance: BIOTIN

REACTIONS (7)
  - Lip pain [None]
  - Bronchitis [None]
  - Oral pain [None]
  - Lip swelling [None]
  - Oropharyngeal pain [None]
  - Hypersensitivity [None]
  - Glossodynia [None]

NARRATIVE: CASE EVENT DATE: 201510
